FAERS Safety Report 8289634-4 (Version None)
Quarter: 2012Q2

REPORT INFORMATION
  Report Type: 
  Country: None (occurrence: None)
  Receive Date: 20120417
  Receipt Date: 20120406
  Transmission Date: 20120825
  Serious: Yes (Hospitalization)
  Sender: FDA-Public Use
  Company Number: FR-SANOFI-AVENTIS-2012SA024239

PATIENT
  Age: 83 Year
  Sex: Male

DRUGS (9)
  1. ASPIRIN [Concomitant]
     Indication: THROMBOSIS PROPHYLAXIS
     Dosage: STRENGTH: 75 MG; 1 DF DAILY IN THE MORNING
     Route: 048
  2. PERINDOPRIL ERBUMINE [Concomitant]
     Dosage: DOSE REDUCED; STRENGTH:5 MG
     Route: 048
  3. PERINDOPRIL ERBUMINE [Concomitant]
     Dosage: REDUCED DOSE
  4. ROSUVASTATIN CALCIUM [Concomitant]
     Dosage: STRENGTH: 5 MG
     Route: 048
  5. FLUTICASONE FUROATE [Concomitant]
     Indication: ASTHMA
     Route: 055
  6. ALFUZOSIN HCL [Suspect]
     Dosage: STRENGTH: 10 MG PROLONGED RELEASE
     Route: 048
  7. NEXIUM [Concomitant]
     Dosage: 2 DF= 80 MG; STRENGTH: 40 MG;REDUCED DOSE
     Route: 048
  8. FORADIL [Concomitant]
     Indication: ASTHMA
     Route: 055
  9. ROSUVASTATIN CALCIUM [Concomitant]
     Dosage: INCREASED DOSE

REACTIONS (2)
  - MALAISE [None]
  - VISUAL IMPAIRMENT [None]
